FAERS Safety Report 20213703 (Version 1)
Quarter: 2021Q4

REPORT INFORMATION
  Report Type: Spontaneous
  Country: CN (occurrence: None)
  Receive Date: 20211221
  Receipt Date: 20211221
  Transmission Date: 20220303
  Serious: Yes (Death, Hospitalization, Other)
  Sender: FDA-Public Use
  Company Number: 2021A882538

PATIENT
  Age: 18876 Day
  Sex: Female
  Weight: 55 kg

DRUGS (6)
  1. TICAGRELOR [Suspect]
     Active Substance: TICAGRELOR
     Indication: Acute myocardial infarction
     Route: 048
     Dates: start: 20211203
  2. TICAGRELOR [Suspect]
     Active Substance: TICAGRELOR
     Indication: Thrombosis
     Route: 048
     Dates: start: 20211203
  3. DALTEPARIN SODIUM [Suspect]
     Active Substance: DALTEPARIN SODIUM
     Indication: Acute myocardial infarction
     Dosage: 5000.0UNITS
     Route: 058
     Dates: start: 20211205
  4. DALTEPARIN SODIUM [Suspect]
     Active Substance: DALTEPARIN SODIUM
     Indication: Thrombosis
     Dosage: 5000.0UNITS
     Route: 058
     Dates: start: 20211205
  5. ASPIRIN [Suspect]
     Active Substance: ASPIRIN
     Indication: Acute myocardial infarction
     Route: 048
     Dates: start: 20211203
  6. ASPIRIN [Suspect]
     Active Substance: ASPIRIN
     Indication: Thrombosis
     Route: 048
     Dates: start: 20211203

REACTIONS (3)
  - Seizure [Fatal]
  - Loss of consciousness [Fatal]
  - Cerebral haemorrhage [Unknown]

NARRATIVE: CASE EVENT DATE: 20211208
